FAERS Safety Report 21312193 (Version 1)
Quarter: 2022Q3

REPORT INFORMATION
  Report Type: Spontaneous
  Country: US (occurrence: None)
  Receive Date: 20220908
  Receipt Date: 20220908
  Transmission Date: 20221027
  Serious: Yes (Life-Threatening, Hospitalization)
  Sender: FDA-Public Use
  Company Number: None

PATIENT
  Age: 46 Year
  Sex: Female

DRUGS (1)
  1. VENOFER [Suspect]
     Active Substance: IRON SUCROSE
     Indication: Iron deficiency
     Dosage: FREQUENCY : ONCE;?
     Route: 041
     Dates: start: 20220907, end: 20220907

REACTIONS (6)
  - Urticaria [None]
  - Mental status changes [None]
  - Dyspnoea [None]
  - Arthralgia [None]
  - Adverse drug reaction [None]
  - Rash [None]

NARRATIVE: CASE EVENT DATE: 20220908
